FAERS Safety Report 13795397 (Version 1)
Quarter: 2017Q3

REPORT INFORMATION
  Report Type: Spontaneous
  Country: DE (occurrence: DE)
  Receive Date: 20170726
  Receipt Date: 20170726
  Transmission Date: 20171127
  Serious: Yes (Other)
  Sender: FDA-Public Use
  Company Number: DE-TEVA-790104GER

PATIENT
  Age: 74 Year
  Sex: Female

DRUGS (6)
  1. TROMCARDIN [Concomitant]
     Active Substance: MAGNESIUM ASPARTATE\POTASSIUM ASPARTATE
  2. VIGANTOLETTEN [Concomitant]
     Active Substance: CHOLECALCIFEROL
  3. ASS 100 [Concomitant]
     Active Substance: ASPIRIN
  4. CANDESARTAN 16 MG [Concomitant]
     Active Substance: CANDESARTAN
     Dosage: LESS THAN 16 MG DAILY
     Dates: end: 201707
  5. CANDESARTAN 16 MG [Concomitant]
     Active Substance: CANDESARTAN
     Dosage: 16 MILLIGRAM DAILY;
     Dates: start: 201707
  6. AMOXICILLIN-RATIOPHARM 1000 MG FILMTABLETTEN [Suspect]
     Active Substance: AMOXICILLIN
     Indication: TONSILLITIS
     Dosage: 3000 MILLIGRAM DAILY;
     Route: 048
     Dates: start: 20170715

REACTIONS (4)
  - Hyperhidrosis [Unknown]
  - Arrhythmia [Not Recovered/Not Resolved]
  - Blood pressure fluctuation [Unknown]
  - Headache [Unknown]

NARRATIVE: CASE EVENT DATE: 201707
